FAERS Safety Report 6648591-4 (Version None)
Quarter: 2010Q1

REPORT INFORMATION
  Report Type: 
  Country: None (occurrence: None)
  Receive Date: 20100319
  Receipt Date: 20100311
  Transmission Date: 20100710
  Serious: No
  Sender: FDA-Public Use
  Company Number: MSTR-NO-1002S-0060

PATIENT
  Age: 59 Year
  Sex: Female

DRUGS (1)
  1. METASTRON [Suspect]
     Indication: METASTATIC PAIN
     Dosage: 78 MBQ, SINGLE DOSE, I.V.
     Route: 042
     Dates: start: 20091201, end: 20091201

REACTIONS (4)
  - BLOOD CALCIUM INCREASED [None]
  - CONDITION AGGRAVATED [None]
  - DECREASED APPETITE [None]
  - NAUSEA [None]
